FAERS Safety Report 5246744-3 (Version None)
Quarter: 2007Q1

REPORT INFORMATION
  Report Type: 
  Country: None (occurrence: None)
  Receive Date: 20070220
  Receipt Date: 20070212
  Transmission Date: 20070707
  Serious: Yes (Other)
  Sender: FDA-Public Use
  Company Number: S07-USA-00665-01

PATIENT
  Age: 44 Year
  Sex: Female

DRUGS (5)
  1. TESSALON [Suspect]
     Indication: BRONCHITIS
     Dosage: 100 MG Q4H PO
     Route: 048
     Dates: start: 20070206, end: 20070210
  2. EFFEXOR [Concomitant]
  3. DITROPAN [Concomitant]
  4. ALLEGRA [Concomitant]
  5. ALLERGY INJECTIONS [Concomitant]

REACTIONS (1)
  - ANAPHYLACTIC REACTION [None]
